FAERS Safety Report 21005814 (Version 1)
Quarter: 2022Q2

REPORT INFORMATION
  Report Type: Spontaneous
  Country: CZ (occurrence: None)
  Receive Date: 20220624
  Receipt Date: 20220624
  Transmission Date: 20220721
  Serious: Yes (Hospitalization, Other)
  Sender: FDA-Public Use
  Company Number: 2022A223029

PATIENT
  Age: 16 Year
  Sex: Female
  Weight: 67.6 kg

DRUGS (1)
  1. EVUSHELD [Suspect]
     Active Substance: CILGAVIMAB\TIXAGEVIMAB
     Dosage: BOTH INJECTIONS (150 MG) WERE GIVEN AT THE OUTPATIENT CLINIC, THEN THE PATIENT WAS MONITORED FOR ...
     Route: 065
     Dates: start: 20220531, end: 20220531

REACTIONS (4)
  - Pyrexia [Recovered/Resolved]
  - Paraesthesia [Recovered/Resolved]
  - Application site pain [Recovered/Resolved]
  - Nausea [Recovered/Resolved]

NARRATIVE: CASE EVENT DATE: 20220531
